FAERS Safety Report 10155387 (Version 1)
Quarter: 2014Q2

REPORT INFORMATION
  Report Type: Spontaneous
  Country: US (occurrence: US)
  Receive Date: 20140506
  Receipt Date: 20140506
  Transmission Date: 20141212
  Serious: No
  Sender: FDA-Public Use
  Company Number: US-SHIRE-US201401963

PATIENT
  Age: 39 Year
  Sex: Female

DRUGS (4)
  1. VYVANSE [Suspect]
     Indication: ATTENTION DEFICIT/HYPERACTIVITY DISORDER
     Dosage: 70 MG, 1X/DAY:QD
     Route: 048
     Dates: start: 2013
  2. VYVANSE [Suspect]
     Dosage: 40 MG, 1X/DAY:QD
     Route: 048
     Dates: start: 201307, end: 2013
  3. ZYRTEC DUO [Concomitant]
     Indication: SEASONAL ALLERGY
     Dosage: 1 DF, AS REQ^D (ONE TABLET A DAY AS NEEDED)
     Route: 048
  4. AMPHETAMINE SALTS [Concomitant]
     Indication: ATTENTION DEFICIT/HYPERACTIVITY DISORDER
     Dosage: 10 MG, 1X/DAY:QD
     Route: 048
     Dates: start: 201401

REACTIONS (2)
  - Asthenia [Not Recovered/Not Resolved]
  - Drug effect decreased [Not Recovered/Not Resolved]
